FAERS Safety Report 4394107-5 (Version None)
Quarter: 2004Q2

REPORT INFORMATION
  Report Type: 
  Country: None (occurrence: None)
  Receive Date: 20040630
  Receipt Date: 19951114
  Transmission Date: 20050107
  Serious: Yes (Death)
  Sender: FDA-Public Use
  Company Number: 34208

PATIENT
  Age: 2 Day
  Sex: Male
  Weight: 0.8 kg

DRUGS (10)
  1. PROLASTIN [Suspect]
     Indication: ACUTE RESPIRATORY DISTRESS SYNDROME
     Dosage: INTRAVENOUS
     Route: 042
     Dates: start: 19951012
  2. AMPICILLIN [Concomitant]
  3. GENTAMYCIN SULFATE [Concomitant]
  4. INDOMETHACIN 25MG CAP [Concomitant]
  5. SODIUM BICARBONATE [Concomitant]
  6. PHENOBARBITAL TAB [Concomitant]
  7. INDOCIN [Concomitant]
  8. RED BLOOD CELLS [Concomitant]
  9. SURFACTANT [Concomitant]
  10. PHENOBARBITAL TAB [Concomitant]

REACTIONS (3)
  - CONVULSION [None]
  - HAEMOGLOBIN DECREASED [None]
  - INTRAVENTRICULAR HAEMORRHAGE NEONATAL [None]
